FAERS Safety Report 6039868-4 (Version None)
Quarter: 2009Q1

REPORT INFORMATION
  Report Type: 
  Country: None (occurrence: None)
  Receive Date: 20090116
  Receipt Date: 20090106
  Transmission Date: 20090719
  Serious: Yes (Hospitalization)
  Sender: FDA-Public Use
  Company Number: PHHO2007MX10100

PATIENT
  Sex: Female

DRUGS (2)
  1. TRILEPTAL [Suspect]
     Indication: BIPOLAR DISORDER
     Dosage: UNK
     Dates: start: 20060501
  2. TRILEPTAL [Suspect]
     Dosage: UNK
     Dates: end: 20070601

REACTIONS (5)
  - ANXIETY [None]
  - DEPRESSION [None]
  - MANIA [None]
  - MENTAL STATUS CHANGES [None]
  - PRURITUS [None]
